FAERS Safety Report 11752110 (Version 3)
Quarter: 2016Q1

REPORT INFORMATION
  Report Type: Spontaneous
  Country: CH (occurrence: CH)
  Receive Date: 20151118
  Receipt Date: 20160114
  Transmission Date: 20160525
  Serious: Yes (Death)
  Sender: FDA-Public Use
  Company Number: CH-SA-2015SA183612

PATIENT
  Sex: Male

DRUGS (1)
  1. CLEXANE MULTI [Suspect]
     Active Substance: ENOXAPARIN SODIUM
     Indication: THROMBOSIS PROPHYLAXIS
     Route: 065

REACTIONS (1)
  - Thrombosis [Fatal]
